FAERS Safety Report 13263337 (Version 1)
Quarter: 2017Q1

REPORT INFORMATION
  Report Type: Spontaneous
  Country: US (occurrence: US)
  Receive Date: 20170222
  Receipt Date: 20170222
  Transmission Date: 20170428
  Serious: Yes (Hospitalization)
  Sender: FDA-Public Use
  Company Number: None

PATIENT
  Age: 8 Year
  Sex: Male
  Weight: 26.8 kg

DRUGS (6)
  1. DAUNORUBICIN [Concomitant]
     Active Substance: DAUNORUBICIN
     Dates: end: 20170104
  2. METHOTREXATE. [Suspect]
     Active Substance: METHOTREXATE
     Dates: end: 20161228
  3. DEXAMETHASONE. [Suspect]
     Active Substance: DEXAMETHASONE
     Dates: end: 20170109
  4. CYTARABINE. [Concomitant]
     Active Substance: CYTARABINE
     Dates: end: 20160121
  5. VINCRISTINE SULFATE. [Suspect]
     Active Substance: VINCRISTINE SULFATE
     Dates: end: 20170104
  6. ONCASPAR [Suspect]
     Active Substance: PEGASPARGASE
     Dates: end: 20170106

REACTIONS (9)
  - Diarrhoea [None]
  - Decreased appetite [None]
  - Blood sodium decreased [None]
  - Vomiting [None]
  - Dehydration [None]
  - Gastroenteritis [None]
  - Constipation [None]
  - Abdominal pain [None]
  - Pneumoperitoneum [None]

NARRATIVE: CASE EVENT DATE: 20170109
